FAERS Safety Report 5104606-6 (Version None)
Quarter: 2006Q3

REPORT INFORMATION
  Report Type: 
  Country: None (occurrence: None)
  Receive Date: 20060914
  Receipt Date: 20060517
  Transmission Date: 20061208
  Serious: No
  Sender: FDA-Public Use
  Company Number: US-BRISTOL-MYERS SQUIBB COMPANY-13380589

PATIENT
  Age: 65 Year
  Sex: Male

DRUGS (2)
  1. BUSPAR [Suspect]
     Indication: ANXIETY
     Dates: start: 20060420, end: 20060426
  2. ESCITALOPRAM [Suspect]
     Dates: start: 20051101

REACTIONS (3)
  - AGITATION [None]
  - DYSKINESIA [None]
  - FATIGUE [None]
